FAERS Safety Report 5551608-1 (Version None)
Quarter: 2007Q4

REPORT INFORMATION
  Report Type: 
  Country: None (occurrence: None)
  Receive Date: 20071129
  Receipt Date: 20070910
  Transmission Date: 20080405
  Serious: Yes (Hospitalization)
  Sender: FDA-Public Use
  Company Number: US200606002496

PATIENT
  Age: 8 Year
  Sex: Female
  Weight: 38.5 kg

DRUGS (3)
  1. ZYPREXA [Suspect]
     Indication: BIPOLAR I DISORDER
     Dosage: 2.5 MG,
     Route: 048
     Dates: start: 20030313, end: 20030507
  2. ZOLOFT [Concomitant]
  3. SEROQUEL [Concomitant]

REACTIONS (4)
  - ACETONAEMIA [None]
  - DIABETES MELLITUS [None]
  - METABOLIC DISORDER [None]
  - NOCTURIA [None]
